FAERS Safety Report 5802025-8 (Version None)
Quarter: 2008Q3

REPORT INFORMATION
  Report Type: 
  Country: None (occurrence: None)
  Receive Date: 20080702
  Receipt Date: 20080616
  Transmission Date: 20090109
  Serious: Yes (Hospitalization)
  Sender: FDA-Public Use
  Company Number: 2008BI012499

PATIENT
  Sex: Female

DRUGS (2)
  1. ZEVALIN [Suspect]
     Indication: DRUG USE FOR UNKNOWN INDICATION
     Dosage: 5 MCI;1X;IV
     Route: 042
     Dates: start: 20080505, end: 20080505
  2. RITUXIMAB [Concomitant]

REACTIONS (1)
  - EMBOLIC STROKE [None]
